FAERS Safety Report 7551062-4 (Version None)
Quarter: 2011Q2

REPORT INFORMATION
  Report Type: 
  Country: None (occurrence: None)
  Receive Date: 20110616
  Receipt Date: 20110607
  Transmission Date: 20111010
  Serious: Yes (Hospitalization)
  Sender: FDA-Public Use
  Company Number: FR-ASTRAZENECA-2011SE35334

PATIENT
  Age: 26260 Day
  Sex: Male

DRUGS (12)
  1. ALFUZOSIN HCL [Concomitant]
  2. ASPIRIN [Concomitant]
  3. BISOPROLOL FUMARATE [Concomitant]
  4. RAMIPRIL [Concomitant]
  5. NEXIUM [Concomitant]
     Route: 048
  6. LASIX [Concomitant]
  7. KEPPRA [Suspect]
     Route: 048
     Dates: start: 20110404, end: 20110509
  8. ACETAMINOPHEN [Concomitant]
     Dosage: AS REQUIRED
  9. CRESTOR [Suspect]
     Route: 048
     Dates: start: 20101001, end: 20110509
  10. ALDACTONE [Concomitant]
  11. XANAX [Concomitant]
  12. POTASSIUM CHLORIDE [Concomitant]

REACTIONS (3)
  - CYTOLYTIC HEPATITIS [None]
  - CHOLESTASIS [None]
  - HEPATIC FAILURE [None]
